FAERS Safety Report 15533592 (Version 1)
Quarter: 2018Q4

REPORT INFORMATION
  Report Type: Spontaneous
  Country: US (occurrence: US)
  Receive Date: 20181019
  Receipt Date: 20181019
  Transmission Date: 20190205
  Serious: Yes (Death, Other)
  Sender: FDA-Public Use
  Company Number: US-SA-2018SA289464

PATIENT
  Age: 73 Year
  Sex: Female
  Weight: 72.11 kg

DRUGS (1)
  1. DUPIXENT [Suspect]
     Active Substance: DUPILUMAB
     Dosage: 2 ML, QOW
     Route: 058
     Dates: start: 20171102

REACTIONS (3)
  - Cerebrovascular accident [Fatal]
  - Accident [Unknown]
  - Cardiac disorder [Fatal]
